FAERS Safety Report 9246351 (Version 2)
Quarter: 2013Q2

REPORT INFORMATION
  Report Type: Report from Study
  Country: US (occurrence: US)
  Receive Date: 20130422
  Receipt Date: 20130423
  Transmission Date: 20140414
  Serious: Yes (Death)
  Sender: FDA-Public Use
  Company Number: US-ROCHE-1216763

PATIENT
  Age: 73 Year
  Sex: Female

DRUGS (2)
  1. AVASTIN [Suspect]
     Indication: SMALL INTESTINE CARCINOMA
     Dosage: LAST DOSE ON /JUN/2010.
     Route: 065
  2. AVASTIN [Suspect]
     Indication: COLORECTAL CANCER

REACTIONS (1)
  - Disease progression [Fatal]
